FAERS Safety Report 8253344-X (Version None)
Quarter: 2012Q2

REPORT INFORMATION
  Report Type: 
  Country: None (occurrence: None)
  Receive Date: 20120402
  Receipt Date: 20120309
  Transmission Date: 20120825
  Serious: No
  Sender: FDA-Public Use
  Company Number: US-AMGEN-USASP2012015769

PATIENT
  Age: 62 Year
  Sex: Male

DRUGS (1)
  1. ENBREL [Suspect]
     Indication: RHEUMATOID ARTHRITIS
     Dosage: 50 MG, QWK
     Dates: start: 20040314

REACTIONS (8)
  - RHEUMATOID ARTHRITIS [None]
  - MOUTH HAEMORRHAGE [None]
  - INJECTION SITE PAIN [None]
  - FOLATE DEFICIENCY [None]
  - INJECTION SITE HAEMATOMA [None]
  - NEUROPATHY PERIPHERAL [None]
  - PAIN IN EXTREMITY [None]
  - INJECTION SITE WARMTH [None]
